FAERS Safety Report 5214674-9 (Version None)
Quarter: 2007Q1

REPORT INFORMATION
  Report Type: 
  Country: None (occurrence: None)
  Receive Date: 20061108
  Receipt Date: 20060328
  Transmission Date: 20070707
  Serious: Yes (Other)
  Sender: FDA-Public Use
  Company Number: US200601004832

PATIENT
  Age: 49 Year
  Sex: Female
  Weight: 59 kg

DRUGS (6)
  1. CYMBALTA [Suspect]
     Indication: DEPRESSION
     Dosage: 30 MG
     Dates: start: 20060112, end: 20060124
  2. CYMBALTA [Suspect]
     Indication: DEPRESSION
     Dosage: 30 MG
     Dates: start: 20060127, end: 20060224
  3. PROZAC [Suspect]
     Indication: DEPRESSION
  4. ESZOPICLONE (ESZOPICLONE) [Concomitant]
  5. ZOMIG [Concomitant]
  6. NEXIUM [Concomitant]

REACTIONS (5)
  - CHEST PAIN [None]
  - CONSTIPATION [None]
  - HEART RATE INCREASED [None]
  - STRESS [None]
  - WEIGHT DECREASED [None]
